FAERS Safety Report 23381413 (Version 2)
Quarter: 2024Q1

REPORT INFORMATION
  Report Type: Spontaneous
  Country: ES (occurrence: ES)
  Receive Date: 20240109
  Receipt Date: 20240116
  Transmission Date: 20240409
  Serious: Yes (Other)
  Sender: FDA-Public Use
  Company Number: None

PATIENT
  Age: 72 Year
  Sex: Female
  Weight: 44 kg

DRUGS (6)
  1. OFEV [Suspect]
     Active Substance: NINTEDANIB
     Indication: Interstitial lung disease
     Route: 048
     Dates: start: 20231121, end: 20231204
  2. EMCONCOR COR  2,5 mg COMPRIMIDOS RECUBIERTOS CON PELICULA , 28 comprim [Concomitant]
     Indication: Product used for unknown indication
  3. SUTRIL 5 mg COMPRIMIDOS, 30 comprimidos [Concomitant]
     Indication: Product used for unknown indication
  4. ACOVIL  2,5 mg COMPRIMIDOS , 28 comprimidos [Concomitant]
     Indication: Product used for unknown indication
  5. LIXIANA 30 MG COMPRIMIDOS RECUBIERTOS CON PELICULA, 28 comprimidos [Concomitant]
     Indication: Product used for unknown indication
     Route: 048
  6. AMIODARONE HYDROCHLORIDE [Concomitant]
     Active Substance: AMIODARONE HYDROCHLORIDE
     Indication: Product used for unknown indication

REACTIONS (5)
  - Weight decreased [Recovering/Resolving]
  - Liver function test abnormal [Recovering/Resolving]
  - Diarrhoea [Recovering/Resolving]
  - Hepatitis acute [Recovering/Resolving]
  - Hypertransaminasaemia [Recovering/Resolving]

NARRATIVE: CASE EVENT DATE: 20231126
